FAERS Safety Report 4780788-0 (Version None)
Quarter: 2005Q3

REPORT INFORMATION
  Report Type: 
  Country: None (occurrence: None)
  Receive Date: 20050927
  Receipt Date: 20050621
  Transmission Date: 20060218
  Serious: Yes (Hospitalization, Disabling, Other)
  Sender: FDA-Public Use
  Company Number: US-MERCK-0506USA03337

PATIENT
  Age: 58 Year
  Sex: Male
  Weight: 95 kg

DRUGS (49)
  1. VIOXX [Suspect]
     Indication: BACK PAIN
     Route: 048
     Dates: start: 20010101, end: 20040101
  2. VIOXX [Suspect]
     Route: 048
  3. VIOXX [Suspect]
     Indication: NECK PAIN
     Route: 048
     Dates: start: 20010101, end: 20040101
  4. VIOXX [Suspect]
     Route: 048
  5. PRINIVIL [Concomitant]
     Route: 065
     Dates: start: 19970101, end: 20030101
  6. GLUCOPHAGE [Concomitant]
     Route: 065
  7. LOTREL [Concomitant]
     Route: 065
  8. SERZONE [Concomitant]
     Route: 065
  9. ACETAMINOPHEN [Concomitant]
     Route: 065
  10. SKELAXIN [Concomitant]
     Route: 065
  11. CEFZIL [Concomitant]
     Route: 065
  12. ALLEGRA [Concomitant]
     Route: 065
  13. TUSSIONEX [Concomitant]
     Route: 065
  14. GLYBURIDE [Concomitant]
     Route: 065
  15. SULFAMETHOXAZOLE [Concomitant]
     Route: 065
  16. CYCLOBENZAPRINE HYDROCHLORIDE [Concomitant]
     Route: 065
  17. CHLORDIAZEPOXIDE HYDROCHLORIDE AND CLIDINIUM BROMIDE [Concomitant]
     Route: 065
  18. LAMISIL [Concomitant]
     Route: 065
  19. METRONIDAZOLE [Concomitant]
     Route: 065
  20. CELEXA [Concomitant]
     Route: 065
  21. LEVAQUIN [Concomitant]
     Route: 065
  22. FLOMAX [Concomitant]
     Route: 065
  23. NYSTATIN [Concomitant]
     Route: 065
  24. ATENOLOL [Concomitant]
     Route: 065
  25. DIFLUCAN [Concomitant]
     Route: 065
  26. GUAIFED [Concomitant]
     Route: 065
  27. METFORMIN [Concomitant]
     Route: 065
  28. CIPRO [Concomitant]
     Route: 065
  29. LORAZEPAM [Concomitant]
     Route: 065
  30. CELEBREX [Concomitant]
     Route: 065
  31. LISINOPRIL [Concomitant]
     Route: 065
  32. AMITRIPTYLINE HYDROCHLORIDE [Concomitant]
     Route: 065
  33. NEURONTIN [Concomitant]
     Route: 065
  34. PROPOXYPHENE HYDROCHLORIDE [Concomitant]
     Route: 065
  35. GLUCOVANCE [Concomitant]
     Route: 065
  36. NAPROXEN [Concomitant]
     Route: 065
  37. DIAZEPAM [Concomitant]
     Route: 065
  38. ROXICET [Concomitant]
     Route: 065
  39. TRIAMCINOLONE [Concomitant]
     Route: 065
  40. PLAVIX [Concomitant]
     Route: 065
  41. CLONIDINE [Concomitant]
     Route: 065
  42. LEXAPRO [Concomitant]
     Route: 065
  43. BENICAR [Concomitant]
     Route: 065
  44. ECONAZOLE [Concomitant]
     Route: 065
  45. ISOSORBIDE [Concomitant]
     Route: 065
  46. NITRO [Concomitant]
     Route: 065
  47. LIPITOR [Concomitant]
     Route: 065
  48. AMOXICILLIN [Concomitant]
     Route: 065
  49. BENZONATATE [Concomitant]
     Route: 065

REACTIONS (13)
  - CEREBROVASCULAR ACCIDENT [None]
  - CORONARY ARTERY DISEASE [None]
  - DEPRESSION [None]
  - DIABETIC MICROANGIOPATHY [None]
  - HYPOAESTHESIA [None]
  - JOINT SPRAIN [None]
  - LIGAMENT SPRAIN [None]
  - MEMORY IMPAIRMENT [None]
  - MYOCARDIAL INFARCTION [None]
  - OVERDOSE [None]
  - PAIN IN EXTREMITY [None]
  - POLLAKIURIA [None]
  - SPINAL CORD DISORDER [None]
